FAERS Safety Report 5564155-8 (Version None)
Quarter: 2007Q4

REPORT INFORMATION
  Report Type: 
  Country: None (occurrence: None)
  Receive Date: 20071212
  Receipt Date: 20071204
  Transmission Date: 20080405
  Serious: Yes (Other)
  Sender: FDA-Public Use
  Company Number: 2007336855

PATIENT
  Age: 26 Year
  Sex: Male
  Weight: 82 kg

DRUGS (1)
  1. COOL CITRUS LISTERINE MOUTHWASH (MENTHOL, METHYL SALICYLATE, EUCALYPTO [Suspect]
     Indication: DENTAL DISORDER PROPHYLAXIS
     Dosage: 10 ML BID (10 ML), ORAL
     Route: 048
     Dates: start: 20071120, end: 20071130

REACTIONS (4)
  - APHTHOUS STOMATITIS [None]
  - ORAL DISORDER [None]
  - ORAL PAIN [None]
  - SPEECH DISORDER [None]
